FAERS Safety Report 7891450-X (Version None)
Quarter: 2011Q4

REPORT INFORMATION
  Report Type: 
  Country: None (occurrence: None)
  Receive Date: 20111103
  Receipt Date: 20110803
  Transmission Date: 20120403
  Serious: No
  Sender: FDA-Public Use
  Company Number: US-AMGEN-USASP2011039359

PATIENT
  Sex: Female

DRUGS (2)
  1. ENBREL [Suspect]
     Indication: PSORIATIC ARTHROPATHY
     Dosage: 50 MG, QWK
     Dates: start: 20090101
  2. TREXALL [Concomitant]
     Dosage: 6 MG, QWK
     Dates: start: 20090101

REACTIONS (6)
  - RESPIRATORY TRACT CONGESTION [None]
  - SINUSITIS [None]
  - ASTHMA [None]
  - FATIGUE [None]
  - MUSCULOSKELETAL STIFFNESS [None]
  - NASAL CONGESTION [None]
